FAERS Safety Report 10227086 (Version 1)
Quarter: 2014Q2

REPORT INFORMATION
  Report Type: Spontaneous
  Country: US (occurrence: US)
  Receive Date: 20140610
  Receipt Date: 20140610
  Transmission Date: 20141212
  Serious: No
  Sender: FDA-Public Use
  Company Number: US-TEVA-487108USA

PATIENT
  Sex: Male

DRUGS (1)
  1. COPAXONE 40MG [Suspect]
     Indication: MULTIPLE SCLEROSIS

REACTIONS (3)
  - Foreign body [Unknown]
  - Injection site injury [Unknown]
  - Product quality issue [Unknown]
